FAERS Safety Report 6719881-1 (Version None)
Quarter: 2010Q2

REPORT INFORMATION
  Report Type: 
  Country: None (occurrence: None)
  Receive Date: 20100510
  Receipt Date: 20100510
  Transmission Date: 20101027
  Serious: Yes (Life-Threatening)
  Sender: FDA-Public Use
  Company Number: None

PATIENT
  Age: 36 Year
  Sex: Female
  Weight: 49.8957 kg

DRUGS (2)
  1. PROVENTIL-HFA [Suspect]
     Indication: ASTHMA
  2. PROVENTIL-HFA [Suspect]
     Indication: HYPERSENSITIVITY

REACTIONS (10)
  - ANHEDONIA [None]
  - ANXIETY [None]
  - FEAR [None]
  - FEAR OF DEATH [None]
  - MORBID THOUGHTS [None]
  - PRODUCT LABEL ISSUE [None]
  - PRODUCT QUALITY ISSUE [None]
  - PRODUCT SUBSTITUTION ISSUE [None]
  - QUALITY OF LIFE DECREASED [None]
  - REACTION TO DRUG EXCIPIENTS [None]
